FAERS Safety Report 5129660-7 (Version None)
Quarter: 2006Q4

REPORT INFORMATION
  Report Type: 
  Country: None (occurrence: None)
  Receive Date: 20061018
  Receipt Date: 20060814
  Transmission Date: 20070319
  Serious: Yes (Other)
  Sender: FDA-Public Use
  Company Number: US-GLAXOSMITHKLINE-A0616547A

PATIENT
  Sex: Female

DRUGS (5)
  1. AVANDIA [Suspect]
     Dosage: 4MG TWICE PER DAY
     Route: 048
     Dates: start: 20060401
  2. PAXIL CR [Suspect]
     Indication: DEPRESSION
     Dosage: 20MG PER DAY
     Route: 048
     Dates: start: 20030101, end: 20030101
  3. PAXIL [Concomitant]
  4. GLUCOPHAGE [Concomitant]
  5. GARLIC SUPPLEMENT [Concomitant]

REACTIONS (13)
  - ANAEMIA [None]
  - BLOOD TRIGLYCERIDES INCREASED [None]
  - CARDIAC STRESS TEST ABNORMAL [None]
  - CONFUSIONAL STATE [None]
  - CORONARY ARTERY OCCLUSION [None]
  - FALL [None]
  - JOINT SWELLING [None]
  - LOW DENSITY LIPOPROTEIN INCREASED [None]
  - OEDEMA PERIPHERAL [None]
  - PAIN IN EXTREMITY [None]
  - RASH [None]
  - RED BLOOD CELL COUNT DECREASED [None]
  - WEIGHT INCREASED [None]
